FAERS Safety Report 16089826 (Version 1)
Quarter: 2019Q1

REPORT INFORMATION
  Report Type: Spontaneous
  Country: IT (occurrence: IT)
  Receive Date: 20190319
  Receipt Date: 20190319
  Transmission Date: 20190418
  Serious: Yes (Hospitalization)
  Sender: FDA-Public Use
  Company Number: IT-PFIZER INC-2019114861

PATIENT
  Age: 65 Year
  Sex: Female

DRUGS (2)
  1. FELDENE [Suspect]
     Active Substance: PIROXICAM
     Indication: INFLAMMATION
     Dosage: 2 DF, 1X/DAY
     Route: 030
     Dates: start: 20181211, end: 20181215
  2. LINCOCIN [Suspect]
     Active Substance: LINCOMYCIN
     Indication: INFECTION
     Dosage: 2 DF, 1X/DAY
     Route: 030
     Dates: start: 20181211, end: 20181215

REACTIONS (2)
  - Throat tightness [Recovered/Resolved]
  - Syncope [Recovered/Resolved]

NARRATIVE: CASE EVENT DATE: 20181215
